FAERS Safety Report 12855918 (Version 1)
Quarter: 2016Q4

REPORT INFORMATION
  Report Type: Spontaneous
  Country: None (occurrence: US)
  Receive Date: 20161017
  Receipt Date: 20161017
  Transmission Date: 20170207
  Serious: Yes (Other)
  Sender: FDA-Public Use
  Company Number: None

PATIENT
  Age: 80 Year
  Sex: Female
  Weight: 53.52 kg

DRUGS (1)
  1. FORTEO [Suspect]
     Active Substance: TERIPARATIDE
     Indication: OSTEOPOROSIS
     Route: 058
     Dates: start: 20160914, end: 20161014

REACTIONS (8)
  - Abdominal distension [None]
  - Arthralgia [None]
  - Hypersensitivity [None]
  - Nausea [None]
  - Asthenia [None]
  - Rash [None]
  - Dizziness [None]
  - Bone pain [None]

NARRATIVE: CASE EVENT DATE: 20161014
